FAERS Safety Report 4848099-2 (Version None)
Quarter: 2005Q4

REPORT INFORMATION
  Report Type: 
  Country: None (occurrence: None)
  Receive Date: 20051206
  Receipt Date: 20051125
  Transmission Date: 20060501
  Serious: Yes (Other)
  Sender: FDA-Public Use
  Company Number: HQWYE735029NOV05

PATIENT
  Age: 54 Year
  Sex: Male

DRUGS (6)
  1. RAPAMUNE [Suspect]
     Indication: PROPHYLAXIS AGAINST TRANSPLANT REJECTION
     Dosage: 8 MG 1X PERE 1 DAY, ORAL
     Route: 048
     Dates: start: 20051111
  2. MYCOPHENOLAE MOFETIL (MYCOPHENOLAE MOFETIL) [Concomitant]
  3. SULFAMETHOXAZOLE + TRIMETHOPRIM [Concomitant]
  4. GANCICLVOIR (GANCICLOVIR) [Concomitant]
  5. RANITDINE (RANITIDNE) [Concomitant]
  6. ARANESP [Concomitant]

REACTIONS (1)
  - KIDNEY TRANSPLANT REJECTION [None]
